FAERS Safety Report 4906223-7 (Version None)
Quarter: 2006Q1

REPORT INFORMATION
  Report Type: 
  Country: None (occurrence: None)
  Receive Date: 20060207
  Receipt Date: 20060126
  Transmission Date: 20060701
  Serious: Yes (Other)
  Sender: FDA-Public Use
  Company Number: RENA-11675

PATIENT
  Age: 54 Year
  Sex: Male

DRUGS (1)
  1. RENAGEL [Suspect]
     Indication: HYPERPHOSPHATAEMIA
     Dosage: 1.6 G DAILY PO
     Route: 048
     Dates: start: 20031209

REACTIONS (7)
  - ARTERIOVENOUS FISTULA THROMBOSIS [None]
  - EROSIVE DUODENITIS [None]
  - GASTROINTESTINAL HAEMORRHAGE [None]
  - HAEMOGLOBIN DECREASED [None]
  - OESOPHAGITIS [None]
  - SHOCK HAEMORRHAGIC [None]
  - ULCER [None]
